FAERS Safety Report 9339500 (Version 2)
Quarter: 2013Q3

REPORT INFORMATION
  Report Type: Spontaneous
  Country: None (occurrence: US)
  Receive Date: 20130610
  Receipt Date: 20130806
  Transmission Date: 20140515
  Serious: No
  Sender: FDA-Public Use
  Company Number: US-TEVA-410189USA

PATIENT
  Age: 67 Year
  Sex: Male
  Weight: 66.28 kg

DRUGS (2)
  1. QNASL [Suspect]
     Indication: SEASONAL ALLERGY
     Dosage: 2 SPRAYS DAILY
     Route: 045
     Dates: start: 20130505, end: 20130528
  2. ALLEGRA [Concomitant]
     Indication: SEASONAL ALLERGY
     Dosage: DAILY
     Route: 048

REACTIONS (2)
  - Burning sensation [Recovered/Resolved]
  - Nasal inflammation [Unknown]
